FAERS Safety Report 18229302 (Version 1)
Quarter: 2020Q3

REPORT INFORMATION
  Report Type: Spontaneous
  Country: US (occurrence: US)
  Receive Date: 20200903
  Receipt Date: 20200903
  Transmission Date: 20201103
  Serious: No
  Sender: FDA-Public Use
  Company Number: US-PERRIGO-20US001742

PATIENT
  Age: 51 Year
  Sex: Female
  Weight: 85.26 kg

DRUGS (7)
  1. MULTIVITAMINS, PLAIN [Concomitant]
     Active Substance: VITAMINS
     Indication: SUPPLEMENTATION THERAPY
     Dosage: UNK
     Route: 065
  2. BIOTIN [Concomitant]
     Active Substance: BIOTIN
     Indication: SUPPLEMENTATION THERAPY
     Dosage: UNK
     Route: 065
  3. DIVIGEL [Suspect]
     Active Substance: ESTRADIOL
     Indication: HORMONE REPLACEMENT THERAPY
     Dosage: 1 PACK, QD
     Route: 061
     Dates: start: 201807, end: 201810
  4. ECHINACEA                          /01323501/ [Concomitant]
     Active Substance: ECHINACEA PURPUREA WHOLE
     Indication: SUPPLEMENTATION THERAPY
     Dosage: UNK
     Route: 065
  5. EVAMIST [Suspect]
     Active Substance: ESTRADIOL
     Dosage: 3.06 MG QD; 1.53 MG PRN
     Route: 062
     Dates: start: 201810
  6. COLLAGEN [Concomitant]
     Active Substance: COLLAGEN
     Indication: SUPPLEMENTATION THERAPY
     Dosage: UNK
     Route: 065
  7. EVAMIST [Suspect]
     Active Substance: ESTRADIOL
     Indication: HORMONE REPLACEMENT THERAPY
     Dosage: 3.06 MG, QD
     Route: 062
     Dates: start: 201805, end: 201807

REACTIONS (3)
  - Weight increased [Not Recovered/Not Resolved]
  - Incorrect dose administered [Unknown]
  - Drug ineffective [Unknown]

NARRATIVE: CASE EVENT DATE: 201810
